FAERS Safety Report 5066576-9 (Version None)
Quarter: 2006Q3

REPORT INFORMATION
  Report Type: 
  Country: None (occurrence: None)
  Receive Date: 20060801
  Receipt Date: 20060724
  Transmission Date: 20061208
  Serious: Yes (Death)
  Sender: FDA-Public Use
  Company Number: PHRM2006FR02147

PATIENT
  Age: 71 Year
  Sex: Male
  Weight: 35.374 kg

DRUGS (6)
  1. NITRODERM [Suspect]
     Indication: HYPERTENSION
     Dosage: 1 DF, QD
     Route: 062
     Dates: start: 20040323, end: 20050420
  2. ZYPREXA [Suspect]
     Indication: DELUSIONAL DISORDER, PERSECUTORY TYPE
     Route: 048
     Dates: start: 20050310, end: 20050420
  3. VASTEN [Concomitant]
     Indication: HYPERCHOLESTEROLAEMIA
     Dosage: 20 MG, QD
     Route: 048
     Dates: start: 20040322, end: 20050420
  4. ZESTRIL [Concomitant]
     Indication: HYPERTENSION
     Dosage: 20 MG, QD
     Route: 048
     Dates: start: 20040323, end: 20050420
  5. INSULATARD NPH HUMAN [Concomitant]
     Indication: DIABETES MELLITUS
     Dosage: 32 IU, QD
     Route: 058
  6. AMLODIPINE BESYLATE [Concomitant]
     Indication: HYPERTENSION
     Dosage: 5 MG, BID
     Route: 048
     Dates: start: 20040322

REACTIONS (19)
  - ALANINE AMINOTRANSFERASE INCREASED [None]
  - ANAEMIA [None]
  - ASPARTATE AMINOTRANSFERASE INCREASED [None]
  - BLOOD ALKALINE PHOSPHATASE INCREASED [None]
  - BLOOD CREATINE PHOSPHOKINASE INCREASED [None]
  - BLOOD CREATINE PHOSPHOKINASE MB [None]
  - BLOOD CREATININE INCREASED [None]
  - BLOOD LACTATE DEHYDROGENASE INCREASED [None]
  - C-REACTIVE PROTEIN INCREASED [None]
  - CONDITION AGGRAVATED [None]
  - CREATININE RENAL CLEARANCE DECREASED [None]
  - FLATULENCE [None]
  - HAEMATOCRIT DECREASED [None]
  - HAEMOGLOBIN DECREASED [None]
  - ISCHAEMIA [None]
  - LEUKOCYTOSIS [None]
  - PYREXIA [None]
  - RENAL FAILURE [None]
  - TROPONIN INCREASED [None]
